FAERS Safety Report 16655378 (Version 1)
Quarter: 2019Q3

REPORT INFORMATION
  Report Type: Spontaneous
  Country: US (occurrence: US)
  Receive Date: 20190617
  Receipt Date: 20190617
  Transmission Date: 20191004
  Serious: Yes (Life-Threatening)
  Sender: FDA-Public Use
  Company Number: None

PATIENT
  Age: 67 Year
  Sex: Male

DRUGS (2)
  1. WARFARIN [Suspect]
     Active Substance: WARFARIN
     Indication: CORONARY ARTERY DISEASE
     Dates: start: 20190401, end: 20190502
  2. WARFARIN [Suspect]
     Active Substance: WARFARIN
     Indication: ATRIAL SEPTAL DEFECT
     Dates: start: 20190401, end: 20190502

REACTIONS (2)
  - Cerebrovascular accident [None]
  - Haemorrhage intracranial [None]

NARRATIVE: CASE EVENT DATE: 20190502
